FAERS Safety Report 4631548-2 (Version None)
Quarter: 2005Q2

REPORT INFORMATION
  Report Type: 
  Country: None (occurrence: None)
  Receive Date: 20050407
  Receipt Date: 20050325
  Transmission Date: 20051028
  Serious: Yes (Other)
  Sender: FDA-Public Use
  Company Number: 2005003069

PATIENT
  Age: 52 Year
  Sex: Male
  Weight: 62 kg

DRUGS (6)
  1. ZOLOFT [Suspect]
     Indication: DEPRESSION
     Dosage: 1 IN 1 D, ORAL
     Route: 048
     Dates: start: 20040925, end: 20041128
  2. ACETAMINOPHEN AND TRAMADOL HCL [Suspect]
     Indication: BACK PAIN
     Dosage: 2 GRAM (2 IN 1 D), ORAL
     Route: 048
     Dates: start: 20040925, end: 20041128
  3. ANTINEOPLASTIC AGENTS (ANTINEOPLASTIC AGENTS) [Concomitant]
  4. PREDNISONE [Concomitant]
  5. FLUINDIONE (FLUDIONE) [Concomitant]
  6. PANTOPRAZOLE (PANTOPRAZOLE) [Concomitant]

REACTIONS (1)
  - INTERSTITIAL LUNG DISEASE [None]
